FAERS Safety Report 17169929 (Version 1)
Quarter: 2019Q4

REPORT INFORMATION
  Report Type: Report from Study
  Country: US (occurrence: US)
  Receive Date: 20191218
  Receipt Date: 20191218
  Transmission Date: 20200122
  Serious: Yes (Other)
  Sender: FDA-Public Use
  Company Number: US-BAYER-2019-226251

PATIENT
  Age: 53 Year
  Sex: Male

DRUGS (1)
  1. STIVARGA [Suspect]
     Active Substance: REGORAFENIB
     Indication: GASTROINTESTINAL STROMAL TUMOUR
     Dosage: DAILY DOSE 160 MG ,  21 DAYS ON AND 7 DAYS OFF
     Route: 048
     Dates: start: 20190918, end: 20191126

REACTIONS (1)
  - Lesion excision [Unknown]
